FAERS Safety Report 19922056 (Version 2)
Quarter: 2022Q1

REPORT INFORMATION
  Report Type: Spontaneous
  Country: DE (occurrence: DE)
  Receive Date: 20211005
  Receipt Date: 20220121
  Transmission Date: 20220423
  Serious: Yes (Hospitalization, Disabling, Other)
  Sender: FDA-Public Use
  Company Number: DE-SANOFI-00692968

PATIENT
  Age: 45 Year
  Sex: Female
  Weight: 95 kg

DRUGS (10)
  1. AUBAGIO [Suspect]
     Active Substance: TERIFLUNOMIDE
     Indication: Multiple sclerosis
     Dosage: 14 MG, QD
     Route: 048
     Dates: start: 20140901, end: 20211214
  2. HYDROCHLOROTHIAZIDE\RAMIPRIL [Concomitant]
     Active Substance: HYDROCHLOROTHIAZIDE\RAMIPRIL
     Indication: Blood pressure management
     Dosage: UNK
     Route: 048
     Dates: start: 202111
  3. HYDROCHLOROTHIAZIDE\RAMIPRIL [Concomitant]
     Active Substance: HYDROCHLOROTHIAZIDE\RAMIPRIL
     Indication: Hypertension
  4. AMLODIPINE BESYLATE [Concomitant]
     Active Substance: AMLODIPINE BESYLATE
     Indication: Hypertension
     Dosage: 1 DF, QD
     Route: 048
     Dates: start: 20210930
  5. BUDESONIDE [Concomitant]
     Active Substance: BUDESONIDE
     Dosage: 3 DF, QD (RESISTANT TO GASTRIC JUICES) (PLEASE REDUCE TO 6 MG AFTER FOUR WEEKS)
  6. CIPROFLOXACIN HYDROCHLORIDE [Concomitant]
     Active Substance: CIPROFLOXACIN HYDROCHLORIDE
     Dosage: 1 DF, BID DAILY
     Dates: end: 20210720
  7. PANTOPRAZOLE SODIUM [Concomitant]
     Active Substance: PANTOPRAZOLE SODIUM
     Dosage: 1 DF, QD (RESISTANT TO GASTRIC JUICES)
  8. PREDNISOLONE [Concomitant]
     Active Substance: PREDNISOLONE
     Dosage: 3.5 DF, QD (WITH TAPERING PLAN)
     Dates: end: 20210725
  9. RAMIPRIL [Concomitant]
     Active Substance: RAMIPRIL
     Indication: Hypertension
     Dosage: 1 DF, BID DAILY
  10. RAMIPRIL [Concomitant]
     Active Substance: RAMIPRIL
     Dosage: 2 ? 1

REACTIONS (24)
  - Crohn^s disease [Unknown]
  - Diarrhoea [Unknown]
  - Haematochezia [Recovered/Resolved]
  - Colitis ulcerative [Unknown]
  - Gastritis erosive [Unknown]
  - Colitis [Unknown]
  - Terminal ileitis [Unknown]
  - Ileal stenosis [Unknown]
  - Gastrointestinal mucosa hyperaemia [Unknown]
  - Duodenitis [Unknown]
  - Mucosal dryness [Unknown]
  - Faecal calprotectin increased [Unknown]
  - Renal failure [Unknown]
  - Abscess intestinal [Unknown]
  - Blood creatinine increased [Unknown]
  - Escherichia urinary tract infection [Unknown]
  - Dysuria [Unknown]
  - Acute kidney injury [Unknown]
  - Renal atrophy [Unknown]
  - Kidney fibrosis [Unknown]
  - Abdominal pain upper [Unknown]
  - Weight decreased [Unknown]
  - Hypertension [Unknown]
  - Adverse drug reaction [Unknown]

NARRATIVE: CASE EVENT DATE: 20210101
